FAERS Safety Report 5979739-2 (Version None)
Quarter: 2008Q4

REPORT INFORMATION
  Report Type: 
  Country: None (occurrence: None)
  Receive Date: 20081204
  Receipt Date: 20080219
  Transmission Date: 20090506
  Serious: No
  Sender: FDA-Public Use
  Company Number: US-AMGEN-KDL264216

PATIENT
  Sex: Male
  Weight: 89 kg

DRUGS (10)
  1. ENBREL [Suspect]
     Indication: RHEUMATOID ARTHRITIS
     Route: 058
     Dates: start: 20000201
  2. METFORMIN HCL [Concomitant]
     Route: 048
  3. GLIPIZIDE [Concomitant]
     Route: 048
  4. ZOCOR [Concomitant]
     Route: 048
  5. VITAMIN B-12 [Concomitant]
     Route: 048
  6. FOLIC ACID [Concomitant]
     Route: 048
  7. FISH OIL [Concomitant]
     Route: 048
  8. ASCORBIC ACID [Concomitant]
  9. MULTI-VITAMINS [Concomitant]
  10. SALSALATE [Concomitant]
     Route: 048

REACTIONS (6)
  - DRUG INEFFECTIVE [None]
  - HYPERGLYCAEMIA [None]
  - INJECTION SITE HAEMATOMA [None]
  - INJECTION SITE IRRITATION [None]
  - INJECTION SITE PAIN [None]
  - RHEUMATOID ARTHRITIS [None]
